FAERS Safety Report 21195294 (Version 1)
Quarter: 2022Q3

REPORT INFORMATION
  Report Type: Report from Study
  Country: NL (occurrence: NL)
  Receive Date: 20220810
  Receipt Date: 20220810
  Transmission Date: 20221027
  Serious: Yes (Other)
  Sender: FDA-Public Use
  Company Number: NL-NOVARTISPH-NVSC2022NL148321

PATIENT
  Age: 27 Year
  Sex: Female

DRUGS (5)
  1. KESIMPTA [Suspect]
     Active Substance: OFATUMUMAB
     Indication: Relapsing multiple sclerosis
     Dosage: UNK, Q4W
     Route: 058
     Dates: start: 20220622
  2. KESIMPTA [Suspect]
     Active Substance: OFATUMUMAB
     Dosage: UNK UNK, Q4W (SECOND INJECTION)
     Route: 058
     Dates: start: 20220630
  3. KESIMPTA [Suspect]
     Active Substance: OFATUMUMAB
     Dosage: UNK UNK, Q4W (THIRD INJECTION)
     Route: 058
     Dates: start: 20220707
  4. KESIMPTA [Suspect]
     Active Substance: OFATUMUMAB
     Dosage: UNK UNK, Q4W (FOURTH INJECTION)
     Route: 058
     Dates: start: 20220721
  5. DESOGESTREL [Concomitant]
     Active Substance: DESOGESTREL
     Indication: Product used for unknown indication
     Dosage: CONCENTRATION: 0.075 (UNIT NOT SPECIFIED)
     Route: 065

REACTIONS (5)
  - Epilepsy [Unknown]
  - Central nervous system lesion [Unknown]
  - Malaise [Recovering/Resolving]
  - Allergy to arthropod bite [Recovering/Resolving]
  - Fatigue [Unknown]

NARRATIVE: CASE EVENT DATE: 20220622
